APPROVED DRUG PRODUCT: BISOPROLOL FUMARATE
Active Ingredient: BISOPROLOL FUMARATE
Strength: 10MG
Dosage Form/Route: TABLET;ORAL
Application: A078635 | Product #002 | TE Code: AB
Applicant: UNICHEM LABORATORIES LTD
Approved: Aug 18, 2009 | RLD: No | RS: Yes | Type: RX